FAERS Safety Report 23792814 (Version 4)
Quarter: 2024Q3

REPORT INFORMATION
  Report Type: Report from Study
  Country: US (occurrence: US)
  Receive Date: 20240429
  Receipt Date: 20240830
  Transmission Date: 20241016
  Serious: Yes (Hospitalization)
  Sender: GLAXOSMITHKLINE
  Company Number: US-GLAXOSMITHKLINE-US2024AMR051484

PATIENT
  Age: 66 Year
  Sex: Female

DRUGS (2)
  1. NIRAPARIB [Suspect]
     Active Substance: NIRAPARIB
     Indication: Ovarian cancer
     Dosage: 100 MG, QD
     Dates: start: 20240412, end: 202407
  2. NYSTATIN [Concomitant]
     Active Substance: NYSTATIN
     Indication: Product used for unknown indication
     Dosage: UNK

REACTIONS (15)
  - Hospitalisation [Not Recovered/Not Resolved]
  - Constipation [Not Recovered/Not Resolved]
  - Heart rate increased [Not Recovered/Not Resolved]
  - Asthenia [Not Recovered/Not Resolved]
  - Nausea [Not Recovered/Not Resolved]
  - Vomiting [Recovering/Resolving]
  - Decreased appetite [Not Recovered/Not Resolved]
  - Weight decreased [Unknown]
  - Oral fungal infection [Not Recovered/Not Resolved]
  - Tumour marker increased [Not Recovered/Not Resolved]
  - Fatigue [Not Recovered/Not Resolved]
  - Illness [Unknown]
  - Oral infection [Not Recovered/Not Resolved]
  - Viral infection [Not Recovered/Not Resolved]
  - Incorrect dose administered [Unknown]

NARRATIVE: CASE EVENT DATE: 20240412
